FAERS Safety Report 7747524-7 (Version None)
Quarter: 2011Q3

REPORT INFORMATION
  Report Type: 
  Country: None (occurrence: None)
  Receive Date: 20110913
  Receipt Date: 20110906
  Transmission Date: 20111222
  Serious: Yes (Other)
  Sender: FDA-Public Use
  Company Number: US-PFIZER INC-2011209254

PATIENT
  Sex: Female

DRUGS (1)
  1. PHOSPHOLINE IODIDE [Suspect]
     Dosage: UNK

REACTIONS (4)
  - VISUAL IMPAIRMENT [None]
  - BLINDNESS [None]
  - SURGERY [None]
  - INTRAOCULAR PRESSURE INCREASED [None]
